FAERS Safety Report 7375312-2 (Version None)
Quarter: 2011Q1

REPORT INFORMATION
  Report Type: 
  Country: None (occurrence: None)
  Receive Date: 20110325
  Receipt Date: 20110316
  Transmission Date: 20110831
  Serious: Yes (Other)
  Sender: FDA-Public Use
  Company Number: JP-ACTELION-A-CH2011-46336

PATIENT
  Age: 75 Year
  Sex: Male

DRUGS (3)
  1. TRACLEER [Suspect]
     Indication: PULMONARY ARTERIAL HYPERTENSION
     Route: 048
  2. EPOPROSTENOL SODIUM [Concomitant]
  3. SILDENAFIL [Concomitant]

REACTIONS (7)
  - HELICOBACTER INFECTION [None]
  - IDIOPATHIC THROMBOCYTOPENIC PURPURA [None]
  - RIGHT VENTRICULAR FAILURE [None]
  - PLATELET COUNT DECREASED [None]
  - LIVER DISORDER [None]
  - DEVICE RELATED INFECTION [None]
  - CONDITION AGGRAVATED [None]
